APPROVED DRUG PRODUCT: DENDRID
Active Ingredient: IDOXURIDINE
Strength: 0.1%
Dosage Form/Route: SOLUTION/DROPS;OPHTHALMIC
Application: N014169 | Product #001
Applicant: ALCON LABORATORIES INC
Approved: Approved Prior to Jan 1, 1982 | RLD: Yes | RS: No | Type: DISCN